FAERS Safety Report 21215469 (Version 1)
Quarter: 2022Q3

REPORT INFORMATION
  Report Type: Spontaneous
  Country: US (occurrence: US)
  Receive Date: 20220816
  Receipt Date: 20220816
  Transmission Date: 20221027
  Serious: No
  Sender: FDA-Public Use
  Company Number: US-AMGEN-USASP2022139931

PATIENT
  Sex: Female

DRUGS (15)
  1. OTEZLA [Suspect]
     Active Substance: APREMILAST
     Indication: Psoriasis
     Dosage: 30 MILLIGRAM, BID
     Route: 048
  2. CARISOPRODOL [Concomitant]
     Active Substance: CARISOPRODOL
  3. ZYRTEC [Concomitant]
     Active Substance: CETIRIZINE HYDROCHLORIDE
  4. LUTEIN-ZEAXANTHIN [Concomitant]
  5. CALCIUM CITRATE + D3 [Concomitant]
  6. BIOTIN [Concomitant]
     Active Substance: BIOTIN
  7. VITAMIN D3 [Concomitant]
     Active Substance: CHOLECALCIFEROL
  8. BAYER ASPIRIN [Concomitant]
     Active Substance: ASPIRIN
  9. DIAZEPAM [Concomitant]
     Active Substance: DIAZEPAM
  10. ACETAMINOPHEN\HYDROCODONE [Concomitant]
     Active Substance: ACETAMINOPHEN\HYDROCODONE
  11. MEDROL [Concomitant]
     Active Substance: METHYLPREDNISOLONE
  12. IBUPROFEN [Concomitant]
     Active Substance: IBUPROFEN
  13. METRONIDAZOLE [Concomitant]
     Active Substance: METRONIDAZOLE
  14. METOPROLOL SUCCINATE [Concomitant]
     Active Substance: METOPROLOL SUCCINATE
  15. ROSUVASTATIN CALCIUM [Concomitant]
     Active Substance: ROSUVASTATIN CALCIUM

REACTIONS (2)
  - Psoriasis [Unknown]
  - Product administration interrupted [Unknown]
